FAERS Safety Report 22349593 (Version 1)
Quarter: 2023Q2

REPORT INFORMATION
  Report Type: Other
  Country: GB (occurrence: GB)
  Receive Date: 20230522
  Receipt Date: 20230522
  Transmission Date: 20230722
  Serious: Yes (Other)
  Sender: FDA-Public Use
  Company Number: None

PATIENT
  Age: 52 Year
  Sex: Female

DRUGS (13)
  1. PROPRANOLOL [Interacting]
     Active Substance: PROPRANOLOL HYDROCHLORIDE
     Indication: Product used for unknown indication
     Dosage: UNK
     Route: 065
  2. LOPERAMIDE HYDROCHLORIDE [Interacting]
     Active Substance: LOPERAMIDE HYDROCHLORIDE
     Indication: Product used for unknown indication
     Dosage: 20 MILLIGRAM, TID
     Route: 065
  3. AMITRIPTYLINE [Interacting]
     Active Substance: AMITRIPTYLINE
     Indication: Product used for unknown indication
     Dosage: UNK
     Route: 065
  4. CYCLIZINE HYDROCHLORIDE [Interacting]
     Active Substance: CYCLIZINE HYDROCHLORIDE
     Indication: Product used for unknown indication
     Dosage: 50 MILLIGRAM, TID
     Route: 065
  5. DALTEPARIN [Interacting]
     Active Substance: DALTEPARIN
     Indication: Product used for unknown indication
     Dosage: UNK UNK, QD, 1800 MICROUNITS PER DAY
     Route: 065
  6. LEVOTHYROXINE [Interacting]
     Active Substance: LEVOTHYROXINE
     Indication: Product used for unknown indication
     Dosage: 75 MICROGRAM, QD
     Route: 065
  7. TRODELVY [Interacting]
     Active Substance: SACITUZUMAB GOVITECAN-HZIY
     Indication: Triple negative breast cancer
     Dosage: UNK, CYCLICAL (FIRST CYCLE)
     Route: 042
     Dates: start: 20221207
  8. TRODELVY [Interacting]
     Active Substance: SACITUZUMAB GOVITECAN-HZIY
     Dosage: UNK CYCLICAL (SECOND AND THIRD CYCLE, DOSE UNKNOWN)
     Route: 042
  9. TRODELVY [Interacting]
     Active Substance: SACITUZUMAB GOVITECAN-HZIY
     Dosage: UNK CYCLICAL (SECOND AND THIRD CYCLE, DOSE UNKNOWN)
     Route: 042
  10. DEXAMETHASONE [Concomitant]
     Active Substance: DEXAMETHASONE
     Indication: Product used for unknown indication
     Dosage: UNK, PRE-MEDICATION
     Route: 065
  11. ONDANSETRON [Concomitant]
     Active Substance: ONDANSETRON
     Indication: Product used for unknown indication
     Dosage: 1 DOSAGE FORM, PRE-MEDICATION
     Route: 065
  12. ACETAMINOPHEN [Concomitant]
     Active Substance: ACETAMINOPHEN
     Indication: Product used for unknown indication
     Dosage: 1000 MILLIGRAM, PRE-MEDICATION
     Route: 065
  13. PREDNISOLONE [Concomitant]
     Active Substance: PREDNISOLONE
     Indication: Product used for unknown indication
     Dosage: UNK, PRE-MEDICATION
     Route: 065

REACTIONS (8)
  - Emotional disorder [Unknown]
  - Neutropenia [Unknown]
  - Drug interaction [Unknown]
  - Expired product administered [Unknown]
  - Product colour issue [Unknown]
  - Diarrhoea [Unknown]
  - Vomiting [Unknown]
  - Fatigue [Unknown]

NARRATIVE: CASE EVENT DATE: 20221207
